FAERS Safety Report 17813332 (Version 1)
Quarter: 2020Q2

REPORT INFORMATION
  Report Type: Spontaneous
  Country: CN (occurrence: CN)
  Receive Date: 20200521
  Receipt Date: 20200521
  Transmission Date: 20200714
  Serious: Yes (Hospitalization, Other)
  Sender: FDA-Public Use
  Company Number: CN-BRACCO-2019CN05559

PATIENT
  Age: 25 Year
  Sex: Male

DRUGS (1)
  1. MULTIHANCE [Suspect]
     Active Substance: GADOBENATE DIMEGLUMINE
     Indication: MAGNETIC RESONANCE IMAGING BRAIN
     Dosage: 15 ML, SINGLE
     Route: 042
     Dates: start: 20191024, end: 20191024

REACTIONS (6)
  - Swelling [Unknown]
  - Injection site pain [Unknown]
  - Infusion site erythema [Unknown]
  - Erythema [Unknown]
  - Pain [Unknown]
  - Injection site swelling [Unknown]

NARRATIVE: CASE EVENT DATE: 20191026
